FAERS Safety Report 18942720 (Version 2)
Quarter: 2021Q2

REPORT INFORMATION
  Report Type: Spontaneous
  Country: RU (occurrence: RU)
  Receive Date: 20210225
  Receipt Date: 20210402
  Transmission Date: 20210717
  Serious: Yes (Hospitalization)
  Sender: FDA-Public Use
  Company Number: RU-ABBVIE-21K-251-3784430-00

PATIENT
  Age: 70 Year
  Sex: Female

DRUGS (1)
  1. VIEKIRA PAK [Suspect]
     Active Substance: DASABUVIR\OMBITASVIR\PARITAPREVIR\RITONAVIR
     Indication: CHRONIC HEPATITIS C
     Dosage: 1 DASABUVIR TAB, TWICE PER DAY?2 OMBITASVIR/PARITAPREVIR/RITONAVIR TABLETS, ONCE DAILY
     Route: 048

REACTIONS (4)
  - Hypotonia [Unknown]
  - Hyponatraemia [Unknown]
  - Guillain-Barre syndrome [Unknown]
  - Hypovolaemia [Unknown]
